FAERS Safety Report 10879612 (Version 4)
Quarter: 2015Q2

REPORT INFORMATION
  Report Type: Spontaneous
  Country: JP (occurrence: JP)
  Receive Date: 20150302
  Receipt Date: 20150625
  Transmission Date: 20150821
  Serious: Yes (Life-Threatening)
  Sender: FDA-Public Use
  Company Number: JP-SA-2015SA022779

PATIENT
  Age: 69 Year
  Sex: Male
  Weight: 61 kg

DRUGS (18)
  1. 5-FU [Suspect]
     Active Substance: FLUOROURACIL
     Indication: COLON CANCER
     Dosage: FREQUENCY: ONCE EVERY 2 DAYS
     Route: 041
     Dates: start: 20150123, end: 20150123
  2. MAGLAX [Concomitant]
     Active Substance: MAGNESIUM OXIDE
     Dates: start: 20141224
  3. POLARAMINE [Concomitant]
     Active Substance: DEXCHLORPHENIRAMINE MALEATE
     Dates: start: 20150123, end: 20150209
  4. NEOPHAGEN [Concomitant]
     Active Substance: GLYCYRRHIZIN
     Dates: start: 20150211, end: 20150216
  5. CELECOX [Concomitant]
     Active Substance: CELECOXIB
  6. TATHION [Concomitant]
     Dates: start: 20150211, end: 20150216
  7. PROEMEND [Concomitant]
     Active Substance: FOSAPREPITANT
     Dates: start: 20150123, end: 20150209
  8. ELPLAT [Suspect]
     Active Substance: OXALIPLATIN
     Indication: COLON CANCER
     Route: 041
     Dates: start: 20150123, end: 20150123
  9. 5-FU [Suspect]
     Active Substance: FLUOROURACIL
     Indication: COLON CANCER
     Dosage: FREQUENCY: ONCE EVERY 2 DAYS
     Route: 040
     Dates: start: 20150209, end: 20150209
  10. AMINO ACIDS NOS [Concomitant]
     Dates: start: 20150211, end: 20150216
  11. ELPLAT [Suspect]
     Active Substance: OXALIPLATIN
     Indication: COLON CANCER
     Route: 041
     Dates: start: 20150209, end: 20150209
  12. GRANISETRON [Concomitant]
     Active Substance: GRANISETRON
     Dates: start: 20150123, end: 20150209
  13. 5-FU [Suspect]
     Active Substance: FLUOROURACIL
     Indication: COLON CANCER
     Route: 040
     Dates: start: 20150123, end: 20150123
  14. LEVOFOLINATE [Concomitant]
     Active Substance: LEVOLEUCOVORIN CALCIUM
     Dosage: DOSE 204.2 MG/M2
     Route: 041
     Dates: start: 20150123, end: 20150209
  15. FAMOTIDINE. [Concomitant]
     Active Substance: FAMOTIDINE
     Dates: start: 20150212, end: 20150224
  16. 5-FU [Suspect]
     Active Substance: FLUOROURACIL
     Indication: COLON CANCER
     Dosage: FREQUENCY:ONCE IN TWO DAYS
     Route: 041
     Dates: start: 20150209, end: 20150209
  17. CEFTRIAXONE SODIUM. [Concomitant]
     Active Substance: CEFTRIAXONE SODIUM
     Dates: start: 20150211, end: 20150216
  18. DEXART [Concomitant]
     Active Substance: DEXAMETHASONE SODIUM PHOSPHATE
     Dates: start: 20150123, end: 20150209

REACTIONS (1)
  - Hyperammonaemia [Recovered/Resolved]

NARRATIVE: CASE EVENT DATE: 20150211
